FAERS Safety Report 7808466-1 (Version None)
Quarter: 2011Q4

REPORT INFORMATION
  Report Type: 
  Country: None (occurrence: None)
  Receive Date: 20111011
  Receipt Date: 20111011
  Transmission Date: 20120403
  Serious: Yes (Other)
  Sender: FDA-Public Use
  Company Number: None

PATIENT
  Sex: Female

DRUGS (1)
  1. ROC MULTI CORREXION EYE TREATMENT [Suspect]
     Indication: DARK CIRCLES UNDER EYES
     Dosage: TOPICAL
     Route: 061

REACTIONS (3)
  - EYE SWELLING [None]
  - EYE PRURITUS [None]
  - DRUG HYPERSENSITIVITY [None]
